FAERS Safety Report 5016718-6 (Version None)
Quarter: 2006Q2

REPORT INFORMATION
  Report Type: 
  Country: None (occurrence: None)
  Receive Date: 20060602
  Receipt Date: 20050304
  Transmission Date: 20061013
  Serious: No
  Sender: FDA-Public Use
  Company Number: US-GLAXOSMITHKLINE-A0548433A

PATIENT
  Age: 6 Year
  Sex: Female

DRUGS (1)
  1. AUGMENTIN '125' [Suspect]
     Indication: PNEUMONIA
     Dosage: 600MG TWICE PER DAY
     Route: 048
     Dates: start: 20050303, end: 20050303

REACTIONS (1)
  - EYE SWELLING [None]
